FAERS Safety Report 12384932 (Version 1)
Quarter: 2016Q2

REPORT INFORMATION
  Report Type: Spontaneous
  Country: HK (occurrence: HK)
  Receive Date: 20160519
  Receipt Date: 20160519
  Transmission Date: 20160815
  Serious: Yes (Other)
  Sender: FDA-Public Use
  Company Number: HK-ACTAVIS-2016-10231

PATIENT
  Age: 56 Year
  Sex: Female

DRUGS (3)
  1. CHLORPHENIRAMINE (UNKNOWN) [Suspect]
     Active Substance: CHLORPHENIRAMINE
     Indication: PRODUCT USED FOR UNKNOWN INDICATION
     Dosage: UNK
     Route: 065
  2. ETHANOL [Interacting]
     Active Substance: ALCOHOL
     Indication: PRODUCT USED FOR UNKNOWN INDICATION
     Dosage: UNK
     Route: 048
  3. ZOPICLONE (UNKNOWN) [Suspect]
     Active Substance: ZOPICLONE
     Indication: PRODUCT USED FOR UNKNOWN INDICATION
     Dosage: 75 MG, SINGLE
     Route: 048

REACTIONS (6)
  - Atrial fibrillation [Unknown]
  - Drug interaction [Recovered/Resolved]
  - Vomiting [Unknown]
  - Dizziness [Unknown]
  - Sulphaemoglobinaemia [Recovered/Resolved]
  - Overdose [Unknown]
